FAERS Safety Report 9841840 (Version 1)
Quarter: 2014Q1

REPORT INFORMATION
  Report Type: Spontaneous
  Country: GB (occurrence: GB)
  Receive Date: 20140124
  Receipt Date: 20140124
  Transmission Date: 20141002
  Serious: Yes (Other)
  Sender: FDA-Public Use
  Company Number: GB-ABBVIE-14P-167-1194166-00

PATIENT
  Sex: 0

DRUGS (1)
  1. CLARITHROMYCIN [Suspect]
     Indication: LOWER RESPIRATORY TRACT INFECTION
     Dosage: DRUG TAKING SINCE 3 DAYS; 500 MG
     Dates: start: 20140111

REACTIONS (2)
  - Nightmare [Unknown]
  - Adverse drug reaction [Unknown]
